FAERS Safety Report 9960422 (Version 1)
Quarter: 2014Q1

REPORT INFORMATION
  Report Type: Report from Study
  Country: US (occurrence: US)
  Receive Date: 20140305
  Receipt Date: 20140305
  Transmission Date: 20141002
  Serious: No
  Sender: FDA-Public Use
  Company Number: US-ABBVIE-13P-163-1104585-00

PATIENT
  Age: 62 Year
  Sex: Female

DRUGS (5)
  1. HUMIRA [Suspect]
     Indication: CROHN^S DISEASE
     Dates: start: 20130119
  2. PRAVASTATIN [Concomitant]
     Indication: BLOOD CHOLESTEROL
  3. ORACEA [Concomitant]
     Indication: ROSACEA
  4. SPIRONOLACTONE [Concomitant]
     Indication: ROSACEA
  5. COLESTIPOL [Concomitant]
     Indication: CHOLECYSTOSTOMY

REACTIONS (4)
  - Nasal congestion [Not Recovered/Not Resolved]
  - Cough [Recovered/Resolved with Sequelae]
  - Chest discomfort [Not Recovered/Not Resolved]
  - Drug dose omission [Not Recovered/Not Resolved]
